FAERS Safety Report 4704576-6 (Version None)
Quarter: 2005Q2

REPORT INFORMATION
  Report Type: 
  Country: None (occurrence: None)
  Receive Date: 20050629
  Receipt Date: 20050613
  Transmission Date: 20051028
  Serious: Yes (Hospitalization)
  Sender: FDA-Public Use
  Company Number: 2005US000762

PATIENT
  Age: 6 Year
  Sex: Male
  Weight: 26 kg

DRUGS (5)
  1. AMBISOME [Suspect]
     Dosage: 15.00 MG, UID/QD, IV NOS
     Route: 042
     Dates: start: 20050423, end: 20050426
  2. FUNGIZONE [Suspect]
     Dosage: 22.50 MG, UID/QD, IV NOS
     Route: 042
     Dates: start: 20050427, end: 20050502
  3. ZOVIRAX [Suspect]
     Indication: HERPES ZOSTER
     Dosage: 500.00 MG, TID, IV NOS
     Route: 042
     Dates: start: 20050428, end: 20050502
  4. CLAFORAN [Concomitant]
  5. FOSFOMYCIN            (FOSFOMYCIN) [Concomitant]

REACTIONS (2)
  - ASPERGILLOSIS [None]
  - GLOMERULONEPHRITIS [None]
